FAERS Safety Report 21108303 (Version 1)
Quarter: 2022Q3

REPORT INFORMATION
  Report Type: Spontaneous
  Country: US (occurrence: US)
  Receive Date: 20220720
  Receipt Date: 20220720
  Transmission Date: 20221026
  Serious: No
  Sender: FDA-Public Use
  Company Number: US-SA-SAC20220718001178

PATIENT
  Age: 87 Year
  Sex: Male

DRUGS (3)
  1. DUPIXENT [Suspect]
     Active Substance: DUPILUMAB
     Dosage: 600 MG, QM
     Route: 058
     Dates: start: 2021
  2. REPATHA [Concomitant]
     Active Substance: EVOLOCUMAB
     Dosage: UNK
  3. FERATE [Concomitant]
     Dosage: UNK

REACTIONS (4)
  - COVID-19 [Recovered/Resolved]
  - Decreased appetite [Recovering/Resolving]
  - Weight decreased [Unknown]
  - Inappropriate schedule of product administration [Unknown]

NARRATIVE: CASE EVENT DATE: 20210101
